FAERS Safety Report 5060207-X (Version None)
Quarter: 2006Q3

REPORT INFORMATION
  Report Type: 
  Country: None (occurrence: None)
  Receive Date: 20060724
  Receipt Date: 20060712
  Transmission Date: 20061208
  Serious: Yes (Other)
  Sender: FDA-Public Use
  Company Number: FR-GILEAD-2006-0009864

PATIENT
  Sex: Male
  Weight: 100 kg

DRUGS (7)
  1. HEPSERA [Suspect]
     Indication: HEPATITIS B
     Route: 048
     Dates: start: 20031201
  2. LEVOTHYROXINE SODIUM [Concomitant]
     Indication: HYPOTHYROIDISM
     Route: 048
     Dates: start: 20020101
  3. URBANYL [Concomitant]
     Dates: start: 20030101
  4. TERCIAN [Concomitant]
     Route: 048
     Dates: start: 20030101
  5. FRACTAL [Concomitant]
     Route: 048
  6. ENDOTHELON [Concomitant]
     Route: 048
  7. ALLOPURINOL [Concomitant]
     Route: 048

REACTIONS (2)
  - RENAL FAILURE [None]
  - RENAL TUBULAR DISORDER [None]
